FAERS Safety Report 13117043 (Version 2)
Quarter: 2017Q2

REPORT INFORMATION
  Report Type: Spontaneous
  Country: JP (occurrence: JP)
  Receive Date: 20170116
  Receipt Date: 20170609
  Transmission Date: 20170830
  Serious: Yes (Death, Hospitalization, Other)
  Sender: FDA-Public Use
  Company Number: PHJP2016JP018108

PATIENT
  Age: 71 Year
  Sex: Female
  Weight: 37 kg

DRUGS (9)
  1. PERIACTIN [Concomitant]
     Active Substance: CYPROHEPTADINE HYDROCHLORIDE
     Indication: PRODUCT USED FOR UNKNOWN INDICATION
     Dosage: UNK
     Route: 065
     Dates: start: 20160511, end: 20160517
  2. MEDICON [Concomitant]
     Active Substance: DEXTROMETHORPHAN HYDROBROMIDE
     Indication: PRODUCT USED FOR UNKNOWN INDICATION
     Dosage: UNK
     Route: 065
     Dates: start: 20160511, end: 20160517
  3. FLOMOX [Concomitant]
     Active Substance: CEFCAPENE PIVOXIL HYDROCHLORIDE HYDRATE
     Indication: PRODUCT USED FOR UNKNOWN INDICATION
     Dosage: UNK
     Route: 065
     Dates: start: 20160511, end: 20160515
  4. AFINITOR [Suspect]
     Active Substance: EVEROLIMUS
     Indication: BREAST CANCER RECURRENT
     Dosage: 5-10 MG, QD
     Route: 048
     Dates: start: 20150826, end: 20160529
  5. CALONAL [Concomitant]
     Active Substance: ACETAMINOPHEN
     Indication: CANCER PAIN
     Dosage: 400 MG, TID
     Route: 048
     Dates: start: 20150924, end: 20151021
  6. CALONAL [Concomitant]
     Active Substance: ACETAMINOPHEN
     Dosage: UNK
     Route: 048
     Dates: start: 20160511, end: 20160517
  7. FEMARA [Concomitant]
     Active Substance: LETROZOLE
     Indication: BREAST CANCER
     Dosage: 2.5 MG, QD
     Route: 048
     Dates: start: 20160309, end: 20160529
  8. ZOLEDRONATE [Suspect]
     Active Substance: ZOLEDRONIC ACID
     Indication: METASTASES TO BONE
     Dosage: 4 MG, ONCE EVERY 3 OR 4 WEEKS
     Route: 042
     Dates: start: 20150826, end: 20160831
  9. AROMASIN [Concomitant]
     Active Substance: EXEMESTANE
     Indication: BREAST CANCER RECURRENT
     Dosage: 25 MG, QD
     Route: 048
     Dates: start: 20150826, end: 20160308

REACTIONS (8)
  - Lymphangiosis carcinomatosa [Fatal]
  - Bone marrow failure [Unknown]
  - Anaemia [Not Recovered/Not Resolved]
  - Myelodysplastic syndrome [Unknown]
  - Gastritis [Recovered/Resolved]
  - Stomatitis [Recovered/Resolved]
  - Respiratory failure [Fatal]
  - Pancytopenia [Not Recovered/Not Resolved]

NARRATIVE: CASE EVENT DATE: 20150924
